FAERS Safety Report 7164717-0 (Version None)
Quarter: 2010Q4

REPORT INFORMATION
  Report Type: 
  Country: None (occurrence: None)
  Receive Date: 20101215
  Receipt Date: 20101209
  Transmission Date: 20110411
  Serious: Yes (Other)
  Sender: FDA-Public Use
  Company Number: US-AMGEN-USASP2010006612

PATIENT

DRUGS (4)
  1. NPLATE [Suspect]
     Indication: IDIOPATHIC THROMBOCYTOPENIC PURPURA
     Dosage: 200 MG, UNK
     Dates: start: 20101116
  2. NPLATE [Suspect]
     Dosage: 250 MG, UNK
     Dates: end: 20101123
  3. IVIGLOB-EX [Suspect]
  4. RITUXIMAB [Concomitant]

REACTIONS (3)
  - BONE MARROW FAILURE [None]
  - CONDITION AGGRAVATED [None]
  - NO THERAPEUTIC RESPONSE [None]
